FAERS Safety Report 6827463-6 (Version None)
Quarter: 2010Q3

REPORT INFORMATION
  Report Type: 
  Country: None (occurrence: None)
  Receive Date: 20100709
  Receipt Date: 20100624
  Transmission Date: 20110219
  Serious: Yes (Congenital Anomaly)
  Sender: FDA-Public Use
  Company Number: PHFR2010GB01141

PATIENT
  Sex: Male
  Weight: 3.08 kg

DRUGS (1)
  1. CICLOSPORIN [Suspect]
     Route: 064

REACTIONS (3)
  - CONGENITAL HAND MALFORMATION [None]
  - DRUG EXPOSURE DURING PREGNANCY [None]
  - TRISOMY 21 [None]
